FAERS Safety Report 23958104 (Version 1)
Quarter: 2024Q2

REPORT INFORMATION
  Report Type: Spontaneous
  Country: US (occurrence: US)
  Receive Date: 20240610
  Receipt Date: 20240610
  Transmission Date: 20240716
  Serious: No
  Sender: FDA-Public Use
  Company Number: US-AMGEN-USASP2024109938

PATIENT
  Age: 8 Year
  Sex: Female

DRUGS (14)
  1. RITUXIMAB [Suspect]
     Active Substance: RITUXIMAB
     Indication: B-cell type acute leukaemia
     Dosage: 375 MILLIGRAM/SQ. METER, DAYS 2 AND 8
     Route: 042
  2. BLINATUMOMAB [Concomitant]
     Active Substance: BLINATUMOMAB
     Indication: B-cell type acute leukaemia
     Dosage: 5 MICROGRAM/SQ. METER, QD (MAX 9 MCG/DAY), DAYS 14-17
     Route: 042
  3. BLINATUMOMAB [Concomitant]
     Active Substance: BLINATUMOMAB
     Dosage: 15 MICROGRAM/SQ. METER, QD (MAX 28 MCG/DAY), DAYS 18-29
     Route: 042
  4. PEGFILGRASTIM [Concomitant]
     Active Substance: PEGFILGRASTIM
     Indication: Prophylaxis
     Dosage: 0.1 MILLIGRAM/KILOGRAM (MAX 6 MG), DAY 4
     Route: 058
  5. PEGFILGRASTIM [Concomitant]
     Active Substance: PEGFILGRASTIM
     Dosage: 0.1 MILLIGRAM/KILOGRAM (MAX 6 MG), DAY 5
     Route: 058
  6. CYCLOPHOSPHAMIDE [Concomitant]
     Active Substance: CYCLOPHOSPHAMIDE
     Indication: B-cell type acute leukaemia
     Dosage: 150 MILLIGRAM/SQ. METER, Q12H, DAYS 1-3 (6 TOTAL DOSES)
     Route: 042
  7. VINCRISTINE [Concomitant]
     Active Substance: VINCRISTINE
     Indication: B-cell type acute leukaemia
     Dosage: 1.5 MILLIGRAM/SQ. METER (MAX 2 MG/DOSE), DAYS 1 AND 8
     Route: 042
  8. DEXAMETHASONE [Concomitant]
     Active Substance: DEXAMETHASONE
     Indication: B-cell type acute leukaemia
     Dosage: 10 MILLIGRAM/SQ. METER, Q12H (MAX 20 MG/DAY) DAYS 1-4 AND 11-14
     Route: 042
  9. METHOTREXATE [Concomitant]
     Active Substance: METHOTREXATE
     Indication: B-cell type acute leukaemia
     Dosage: 250 MILLIGRAM/SQ. METER, OVER 24 HOURS (50 MG/M2 OVER 2 HOURS THEN 200 MG/M2 OVER 22 HOURS) DAY 1
     Route: 042
  10. CYTARABINE [Concomitant]
     Active Substance: CYTARABINE
     Indication: B-cell type acute leukaemia
     Dosage: 0.5 GRAM PER SQUARE METRE, Q12H, DAYS 2 AND 3 (4 TOTAL DOSES)
     Route: 042
  11. INOTUZUMAB OZOGAMICIN [Concomitant]
     Active Substance: INOTUZUMAB OZOGAMICIN
     Indication: B-cell type acute leukaemia
     Dosage: 0.6 MILLIGRAM/SQ. METER, DAY 2 (CYCLE 1)
     Route: 042
  12. INOTUZUMAB OZOGAMICIN [Concomitant]
     Active Substance: INOTUZUMAB OZOGAMICIN
     Dosage: 0.3 MILLIGRAM/SQ. METER, DAYS 8 AND 15 (CYCLE 1)
     Route: 042
  13. INOTUZUMAB OZOGAMICIN [Concomitant]
     Active Substance: INOTUZUMAB OZOGAMICIN
     Dosage: 0.3 MILLIGRAM/SQ. METER, DAYS 2 AND 8 (CYCLE 2)
     Route: 042
  14. INOTUZUMAB OZOGAMICIN [Concomitant]
     Active Substance: INOTUZUMAB OZOGAMICIN
     Dosage: 1.8 MILLIGRAM/SQ. METER
     Route: 042

REACTIONS (2)
  - Drug effective for unapproved indication [Unknown]
  - Off label use [Unknown]
